FAERS Safety Report 16489014 (Version 2)
Quarter: 2019Q2

REPORT INFORMATION
  Report Type: Report from Study
  Country: None (occurrence: US)
  Receive Date: 20190628
  Receipt Date: 20190628
  Transmission Date: 20190711
  Serious: Yes (Death)
  Sender: FDA-Public Use
  Company Number: US-ABBVIE-19K-163-2836057-00

PATIENT
  Age: 81 Year
  Sex: Female

DRUGS (3)
  1. VENCLEXTA [Suspect]
     Active Substance: VENETOCLAX
     Indication: ACUTE MYELOID LEUKAEMIA
     Dosage: DAY 01
     Route: 048
     Dates: start: 20190305, end: 20190305
  2. VENCLEXTA [Suspect]
     Active Substance: VENETOCLAX
     Dosage: DAY 02
     Route: 048
     Dates: start: 20190306, end: 20190306
  3. VENCLEXTA [Suspect]
     Active Substance: VENETOCLAX
     Dosage: FROM DAY 03
     Route: 048
     Dates: start: 20190307, end: 201903

REACTIONS (1)
  - Death [Fatal]

NARRATIVE: CASE EVENT DATE: 20190329
